APPROVED DRUG PRODUCT: ORTIKOS
Active Ingredient: BUDESONIDE
Strength: 9MG
Dosage Form/Route: CAPSULE, DELAYED RELEASE;ORAL
Application: N211929 | Product #002
Applicant: SUN PHARMACEUTICAL INDUSTRIES INC
Approved: Jun 13, 2019 | RLD: Yes | RS: No | Type: DISCN

PATENTS:
Patent 10172802 | Expires: Sep 9, 2036
Patent 9707182 | Expires: Sep 9, 2036